FAERS Safety Report 8145269-5 (Version None)
Quarter: 2012Q1

REPORT INFORMATION
  Report Type: 
  Country: None (occurrence: None)
  Receive Date: 20120217
  Receipt Date: 20120209
  Transmission Date: 20120608
  Serious: Yes (Hospitalization)
  Sender: FDA-Public Use
  Company Number: PHHY2012SE011962

PATIENT
  Age: 10 Year
  Sex: Male

DRUGS (2)
  1. DICLOFENACO SANDOZ [Suspect]
     Indication: HEADACHE
     Dosage: 25 MG, DAILY
     Dates: start: 20111212, end: 20111216
  2. DICLOFENACO SANDOZ [Suspect]
     Indication: SOMNOLENCE

REACTIONS (3)
  - HEADACHE [None]
  - NECK PAIN [None]
  - DYSPNOEA [None]
